FAERS Safety Report 8426720-X (Version None)
Quarter: 2012Q2

REPORT INFORMATION
  Report Type: 
  Country: None (occurrence: None)
  Receive Date: 20120323
  Receipt Date: 20110909
  Transmission Date: 20120825
  Serious: Yes (Hospitalization, Other)
  Sender: FDA-Public Use
  Company Number: 163-21880-11043746

PATIENT
  Age: 69 Year
  Sex: Female

DRUGS (27)
  1. REVLIMID [Suspect]
     Indication: MULTIPLE MYELOMA
     Dosage: 15 MG, DAILY X 21 DAYS, OFF 14 DAYS, PO
     Route: 048
     Dates: start: 20101130, end: 20110531
  2. NITROGLYCERIN [Concomitant]
  3. DIOVAN [Concomitant]
  4. NEXIUM [Concomitant]
  5. MACROBID [Concomitant]
  6. OXYGEN (OXYGEN) [Concomitant]
  7. OXYCODONE HYDROCHLORIDE [Concomitant]
  8. SIMVASTATIN [Concomitant]
  9. POLYMYXIN B-TRIMETHOPRIM (POLYTRIM) [Concomitant]
  10. FEXOFENADINE HCL [Concomitant]
  11. ZOLPIDEM [Concomitant]
  12. DILTIAZEM [Concomitant]
  13. DEXAMETHASONE [Concomitant]
  14. FLUTICASONE PROPIONATE [Concomitant]
  15. SYSTANE ULTRA (RHINARIS) [Concomitant]
  16. VITAMIN B6 [Concomitant]
  17. AUGMENTIN '125' [Concomitant]
  18. GABAPENTIN [Concomitant]
  19. ZOMETA [Concomitant]
  20. VITAMIN B12 [Concomitant]
  21. METANX (METANX) [Concomitant]
  22. LASIX [Concomitant]
  23. FOLBIC (HEPAGRISEVIT FORTE-N TABLET) [Concomitant]
  24. AMBIEN [Concomitant]
  25. ASPIRIN [Concomitant]
  26. CULTURELLE (CULTURELLE) [Concomitant]
  27. LORTAB [Concomitant]

REACTIONS (4)
  - BONE MARROW FAILURE [None]
  - LOSS OF CONSCIOUSNESS [None]
  - MYOCARDIAL INFARCTION [None]
  - RASH [None]
